FAERS Safety Report 8585163-9 (Version None)
Quarter: 2012Q3

REPORT INFORMATION
  Report Type: 
  Country: None (occurrence: None)
  Receive Date: 20120810
  Receipt Date: 20120806
  Transmission Date: 20120928
  Serious: Yes (Hospitalization)
  Sender: FDA-Public Use
  Company Number: PHHY2012JP068609

PATIENT
  Sex: Male

DRUGS (2)
  1. CYCLOSPORINE [Suspect]
     Indication: NEPHROTIC SYNDROME
  2. PREDNISOLONE [Concomitant]
     Indication: NEPHROTIC SYNDROME
     Dosage: 40 MG, UNK

REACTIONS (4)
  - LOCALISED INFECTION [None]
  - STAPHYLOCOCCAL SEPSIS [None]
  - VESSEL PERFORATION [None]
  - PNEUMONIA STAPHYLOCOCCAL [None]
